FAERS Safety Report 23538896 (Version 1)
Quarter: 2024Q1

REPORT INFORMATION
  Report Type: Spontaneous
  Country: JP (occurrence: JP)
  Receive Date: 20240219
  Receipt Date: 20240219
  Transmission Date: 20240410
  Serious: Yes (Other)
  Sender: FDA-Public Use
  Company Number: JP-ONO-2024JP003162

PATIENT

DRUGS (1)
  1. KYPROLIS [Suspect]
     Active Substance: CARFILZOMIB
     Indication: Plasma cell myeloma
     Dosage: 56 MG/M2, TWICE WEEKLY
     Route: 041

REACTIONS (3)
  - Cardiac amyloidosis [Unknown]
  - Cardiac failure [Unknown]
  - Electrocardiogram QT prolonged [Unknown]
